FAERS Safety Report 12948253 (Version 1)
Quarter: 2016Q4

REPORT INFORMATION
  Report Type: Spontaneous
  Country: US (occurrence: US)
  Receive Date: 20161116
  Receipt Date: 20161116
  Transmission Date: 20170207
  Serious: Yes (Other)
  Sender: FDA-Public Use
  Company Number: US-LPDUSPRD-20161011

PATIENT
  Age: 8 Month
  Sex: Male

DRUGS (2)
  1. DEXAMETHASONE SODIUM PHOSPHATE INJECTION, USP (4901-25) [Suspect]
     Active Substance: DEXAMETHASONE SODIUM PHOSPHATE
     Dosage: 1.6 MG/KG/DAY
     Route: 042
  2. RANITIDINE. [Concomitant]
     Active Substance: RANITIDINE
     Dosage: 15 MG TWICE DAILY
     Route: 065

REACTIONS (3)
  - Duodenal ulcer haemorrhage [Unknown]
  - Peptic ulcer [Recovered/Resolved with Sequelae]
  - Gastritis [Unknown]
